FAERS Safety Report 7032074-6 (Version None)
Quarter: 2010Q4

REPORT INFORMATION
  Report Type: 
  Country: None (occurrence: None)
  Receive Date: 20101007
  Receipt Date: 20091001
  Transmission Date: 20110411
  Serious: No
  Sender: FDA-Public Use
  Company Number: US-KINGPHARMUSA00001-K200901216

PATIENT
  Sex: Male
  Weight: 122.5 kg

DRUGS (6)
  1. SONATA [Suspect]
     Indication: MIDDLE INSOMNIA
     Dosage: UNK
     Route: 048
     Dates: start: 20090831
  2. LUNESTA [Concomitant]
     Indication: INSOMNIA
     Dosage: 3 MG, QHS
     Route: 048
     Dates: start: 20090827
  3. MIRAPEX [Concomitant]
  4. ANTIHYPERTENSIVES [Concomitant]
  5. DIURETICS [Concomitant]
  6. PLAVIX [Concomitant]

REACTIONS (1)
  - DRUG INEFFECTIVE [None]
